FAERS Safety Report 20408489 (Version 1)
Quarter: 2022Q1

REPORT INFORMATION
  Report Type: Spontaneous
  Country: US (occurrence: US)
  Receive Date: 20220201
  Receipt Date: 20220201
  Transmission Date: 20220424
  Serious: No
  Sender: FDA-Public Use
  Company Number: US-Accord-243653

PATIENT
  Sex: Male

DRUGS (1)
  1. BUSPIRONE HYDROCHLORIDE [Suspect]
     Active Substance: BUSPIRONE HYDROCHLORIDE
     Indication: Anxiety
     Dosage: 5 MG TID, INCREASED TO 10 MG TID
     Dates: start: 202110

REACTIONS (2)
  - Vision blurred [Not Recovered/Not Resolved]
  - Dyspepsia [Not Recovered/Not Resolved]
